FAERS Safety Report 20542951 (Version 1)
Quarter: 2022Q1

REPORT INFORMATION
  Report Type: Spontaneous
  Country: US (occurrence: US)
  Receive Date: 20220302
  Receipt Date: 20220302
  Transmission Date: 20220423
  Serious: Yes (Other)
  Sender: FDA-Public Use
  Company Number: US-DSPHARMA-2022SUN000629

PATIENT

DRUGS (2)
  1. LATUDA [Suspect]
     Active Substance: LURASIDONE HYDROCHLORIDE
     Indication: Bipolar disorder
     Dosage: UNKNOWN
     Route: 048
  2. LITHIUM [Suspect]
     Active Substance: LITHIUM
     Dosage: UNKNOWN

REACTIONS (3)
  - Foetal cardiac disorder [Unknown]
  - Premature baby [Unknown]
  - Foetal exposure during pregnancy [Unknown]
